FAERS Safety Report 9249944 (Version 2)
Quarter: 2013Q2

REPORT INFORMATION
  Report Type: Spontaneous
  Country: BR (occurrence: BR)
  Receive Date: 20130424
  Receipt Date: 20130430
  Transmission Date: 20140414
  Serious: Yes (Death, Hospitalization)
  Sender: FDA-Public Use
  Company Number: BR-AMGEN-BRASP2012027035

PATIENT
  Age: 57 Year
  Sex: Female
  Weight: 108 kg

DRUGS (10)
  1. ENBREL [Suspect]
     Indication: RHEUMATOID ARTHRITIS
     Dosage: 50 MG, ONCE WEEKLY
     Route: 058
     Dates: start: 20120131, end: 20120206
  2. INDOMETHACIN                       /00003801/ [Concomitant]
     Dosage: 30 MG, 2X/DAY
  3. METHOTREXATE [Concomitant]
     Dosage: 1 MG, UNK
  4. HYDROCHLOROTHIAZIDE [Concomitant]
     Dosage: 10 MG, UNK
  5. CHLOROQUINE [Concomitant]
     Dosage: 100 MG, UNK
  6. PREDNISONE [Concomitant]
     Dosage: 5 MG, UNK
  7. FAMOTIDINE [Concomitant]
     Dosage: 20 MG, UNK
  8. ALPRAZOLAM [Concomitant]
     Indication: DEPRESSION
     Dosage: 1.5 MG, 1X/DAY
  9. SERTRALINE [Concomitant]
     Indication: ANXIETY
     Dosage: 80 MG, 1X/DAY
  10. OMEPRAZOLE [Concomitant]
     Dosage: 40 MG, 1X/DAY

REACTIONS (5)
  - Delirium [Unknown]
  - Immunodeficiency [Unknown]
  - Pain in extremity [Unknown]
  - Sepsis [Fatal]
  - Pain [Unknown]
